FAERS Safety Report 16035898 (Version 2)
Quarter: 2019Q1

REPORT INFORMATION
  Report Type: Spontaneous
  Country: US (occurrence: US)
  Receive Date: 20190305
  Receipt Date: 20190326
  Transmission Date: 20190418
  Serious: Yes (Death, Other)
  Sender: FDA-Public Use
  Company Number: US-HIKMA PHARMACEUTICALS USA INC.-US-H14001-19-01325

PATIENT
  Sex: Female

DRUGS (2)
  1. ROXANOL [Suspect]
     Active Substance: MORPHINE SULFATE
     Indication: PAIN
     Route: 048
     Dates: start: 20181115, end: 20181117
  2. ROXANOL [Suspect]
     Active Substance: MORPHINE SULFATE
     Route: 048
     Dates: start: 20181117, end: 20181117

REACTIONS (2)
  - Suspected product tampering [Unknown]
  - Dementia [Fatal]
